FAERS Safety Report 5422475-1 (Version None)
Quarter: 2007Q3

REPORT INFORMATION
  Report Type: 
  Country: None (occurrence: None)
  Receive Date: 20070822
  Receipt Date: 20070810
  Transmission Date: 20080115
  Serious: Yes (Death)
  Sender: FDA-Public Use
  Company Number: KR-ROCHE-511398

PATIENT
  Age: 47 Year
  Sex: Female

DRUGS (2)
  1. ROCEPHIN [Suspect]
     Indication: DRUG USE FOR UNKNOWN INDICATION
     Dosage: DOSE FORM: VIAL
     Route: 042
     Dates: start: 20070808, end: 20070808
  2. TOPANUSOL [Concomitant]
     Dosage: ROUTE REPORTED AS INFUSION
     Dates: start: 20070808, end: 20070808

REACTIONS (3)
  - CYANOSIS [None]
  - DYSPNOEA [None]
  - PULMONARY OEDEMA [None]
